FAERS Safety Report 16751055 (Version 1)
Quarter: 2019Q3

REPORT INFORMATION
  Report Type: Spontaneous
  Country: US (occurrence: US)
  Receive Date: 20190828
  Receipt Date: 20190828
  Transmission Date: 20191005
  Serious: No
  Sender: FDA-Public Use
  Company Number: US-TAKEDA-2019TUS049470

PATIENT
  Sex: Female
  Weight: 58.96 kg

DRUGS (1)
  1. DEXILANT [Suspect]
     Active Substance: DEXLANSOPRAZOLE
     Indication: ABDOMINAL PAIN UPPER
     Dosage: 60 MILLIGRAM, QD
     Route: 065
     Dates: start: 2019, end: 20190815

REACTIONS (4)
  - Abdominal pain upper [Unknown]
  - Condition aggravated [Unknown]
  - Off label use [Unknown]
  - Apparent death [Unknown]
